FAERS Safety Report 14179092 (Version 1)
Quarter: 2017Q4

REPORT INFORMATION
  Report Type: Spontaneous
  Country: US (occurrence: US)
  Receive Date: 20171110
  Receipt Date: 20171110
  Transmission Date: 20180321
  Serious: No
  Sender: FDA-Public Use
  Company Number: US-ELI_LILLY_AND_COMPANY-US201711002757

PATIENT
  Age: 77 Year
  Sex: Male

DRUGS (4)
  1. TRIAMCINOLONE                      /00031903/ [Concomitant]
     Indication: INFECTION
  2. TOUJEO [Concomitant]
     Active Substance: INSULIN GLARGINE
     Indication: PRODUCT USED FOR UNKNOWN INDICATION
     Dosage: UNK, EACH EVENING
  3. HUMALOG [Suspect]
     Active Substance: INSULIN LISPRO
     Indication: TYPE 2 DIABETES MELLITUS
     Dosage: UNK, PRN, SLIDING SCALE THREE TIMES A DAY
     Route: 065
     Dates: start: 20160506
  4. PREDNISONE. [Suspect]
     Active Substance: PREDNISONE
     Indication: PRODUCT USED FOR UNKNOWN INDICATION
     Dosage: UNK, UNKNOWN
     Route: 065

REACTIONS (8)
  - Stress [Unknown]
  - Pruritus [Unknown]
  - Eczema [Unknown]
  - Blood glucose increased [Unknown]
  - Blister [Unknown]
  - Glycosylated haemoglobin increased [Unknown]
  - Urticaria [Unknown]
  - Infection [Unknown]

NARRATIVE: CASE EVENT DATE: 20170726
